FAERS Safety Report 23074457 (Version 1)
Quarter: 2023Q4

REPORT INFORMATION
  Report Type: Spontaneous
  Country: CN (occurrence: CN)
  Receive Date: 20231017
  Receipt Date: 20231017
  Transmission Date: 20240109
  Serious: Yes (Disabling, Other)
  Sender: FDA-Public Use
  Company Number: CN-PFIZER INC-PV202300169320

PATIENT
  Age: 89 Year
  Sex: Male

DRUGS (1)
  1. LINEZOLID [Suspect]
     Active Substance: LINEZOLID
     Indication: Infection
     Dosage: 0.6 G, 2X/DAY
     Route: 041
     Dates: start: 20230923, end: 20230926

REACTIONS (5)
  - Thrombocytopenia [Recovering/Resolving]
  - Drug ineffective [Unknown]
  - Jaundice [Unknown]
  - Condition aggravated [Unknown]
  - Sepsis [Unknown]

NARRATIVE: CASE EVENT DATE: 20230926
